FAERS Safety Report 20679508 (Version 1)
Quarter: 2022Q2

REPORT INFORMATION
  Report Type: Spontaneous
  Country: US (occurrence: None)
  Receive Date: 20220405
  Receipt Date: 20220405
  Transmission Date: 20220721
  Serious: Yes (Hospitalization)
  Sender: FDA-Public Use
  Company Number: None

PATIENT
  Age: 90 Year
  Sex: Male
  Weight: 61 kg

DRUGS (2)
  1. GAMUNEX-C [Suspect]
     Active Substance: HUMAN IMMUNOGLOBULIN G
     Indication: Pemphigus
     Route: 042
     Dates: start: 20220404, end: 20220404
  2. GAMUNEX-C [Suspect]
     Active Substance: HUMAN IMMUNOGLOBULIN G
     Indication: Pemphigus
     Route: 042
     Dates: start: 20220404, end: 20220404

REACTIONS (5)
  - Sensory disturbance [None]
  - Sputum discoloured [None]
  - Self-induced vomiting [None]
  - Malaise [None]
  - Infusion related reaction [None]

NARRATIVE: CASE EVENT DATE: 20220404
